FAERS Safety Report 12873851 (Version 2)
Quarter: 2016Q4

REPORT INFORMATION
  Report Type: Spontaneous
  Country: JP (occurrence: JP)
  Receive Date: 20161021
  Receipt Date: 20161110
  Transmission Date: 20170207
  Serious: Yes (Other)
  Sender: FDA-Public Use
  Company Number: JP-009507513-1610JPN011489

PATIENT
  Age: 77 Year
  Sex: Female

DRUGS (6)
  1. AMLODIN OD [Concomitant]
     Active Substance: AMLODIPINE BESYLATE
     Indication: HYPERTENSION
     Dosage: 5 MG, QD
     Route: 048
     Dates: start: 20071030, end: 20160414
  2. JANUVIA [Suspect]
     Active Substance: SITAGLIPTIN PHOSPHATE
     Indication: TYPE 2 DIABETES MELLITUS
     Dosage: 25 MG, QD
     Route: 048
     Dates: start: 20150918
  3. PREMINENT TABLETS HD [Concomitant]
     Indication: HYPERTENSION
     Dosage: 1 DF, QD
     Route: 048
     Dates: start: 20140313, end: 20160414
  4. SUREPOST [Concomitant]
     Active Substance: REPAGLINIDE
     Indication: TYPE 2 DIABETES MELLITUS
     Dosage: 0.5 MG, BID
     Route: 048
     Dates: start: 20121026
  5. NEXIUM [Concomitant]
     Active Substance: ESOMEPRAZOLE MAGNESIUM
     Indication: GASTROOESOPHAGEAL REFLUX DISEASE
     Dosage: 20 MG, QD
     Route: 048
     Dates: start: 20130509
  6. PULMICORT TURBUHALER [Concomitant]
     Active Substance: BUDESONIDE
     Indication: ASTHMA
     Dosage: 1 DF, QD
     Route: 055
     Dates: start: 20090626

REACTIONS (1)
  - Diabetes mellitus [Recovering/Resolving]

NARRATIVE: CASE EVENT DATE: 20151119
